FAERS Safety Report 6864511-1 (Version None)
Quarter: 2010Q3

REPORT INFORMATION
  Report Type: 
  Country: None (occurrence: None)
  Receive Date: 20100721
  Receipt Date: 20080323
  Transmission Date: 20110219
  Serious: No
  Sender: FDA-Public Use
  Company Number: US-PFIZER INC-2008027264

PATIENT
  Sex: Male
  Weight: 102.1 kg

DRUGS (3)
  1. CHANTIX [Suspect]
     Indication: SMOKING CESSATION THERAPY
     Dates: start: 20080101, end: 20080201
  2. TENORMIN [Concomitant]
  3. FIORICET [Concomitant]

REACTIONS (1)
  - MUSCLE SPASMS [None]
